FAERS Safety Report 25227461 (Version 2)
Quarter: 2025Q2

REPORT INFORMATION
  Report Type: Spontaneous
  Country: US (occurrence: US)
  Receive Date: 20250422
  Receipt Date: 20250513
  Transmission Date: 20250717
  Serious: No
  Sender: BAUSCH AND LOMB
  Company Number: US-BAUSCHBL-2025BNL006578

PATIENT
  Age: 81 Year
  Sex: Female

DRUGS (5)
  1. BLINK TEARS PRESERVATIVE FREE [Suspect]
     Active Substance: POLYETHYLENE GLYCOL 400
     Indication: Eye lubrication therapy
     Route: 047
  2. XIIDRA [Suspect]
     Active Substance: LIFITEGRAST
     Indication: Product used for unknown indication
     Route: 047
  3. SOOTHE LUBRICANT EYE PRESERVATIVE FREE [Suspect]
     Active Substance: GLYCERIN\PROPYLENE GLYCOL
     Indication: Product used for unknown indication
     Route: 047
  4. TIMOLOL [Concomitant]
     Active Substance: TIMOLOL
     Indication: Product used for unknown indication
  5. ZIOPTAN [Concomitant]
     Active Substance: TAFLUPROST
     Indication: Product used for unknown indication

REACTIONS (4)
  - Vision blurred [Unknown]
  - Corneal disorder [Unknown]
  - Eyelid margin crusting [Unknown]
  - Visual field defect [Unknown]

NARRATIVE: CASE EVENT DATE: 20230101
